FAERS Safety Report 9135249 (Version 1)
Quarter: 2013Q1

REPORT INFORMATION
  Report Type: Spontaneous
  Country: US (occurrence: US)
  Receive Date: 20130304
  Receipt Date: 20130304
  Transmission Date: 20140127
  Serious: Yes (Other)
  Sender: FDA-Public Use
  Company Number: US-SANOFI-AVENTIS-2013SA019354

PATIENT
  Age: 55 Year
  Sex: Female

DRUGS (1)
  1. AUBAGIO [Suspect]
     Indication: MULTIPLE SCLEROSIS
     Route: 048
     Dates: start: 20130107, end: 20130131

REACTIONS (9)
  - Multiple sclerosis relapse [Unknown]
  - Visual impairment [Unknown]
  - Dizziness [Unknown]
  - Impaired driving ability [Unknown]
  - Heart rate increased [Unknown]
  - Blood pressure increased [Unknown]
  - Tinnitus [Unknown]
  - Feeling abnormal [Unknown]
  - Liver function test abnormal [Unknown]
